FAERS Safety Report 7304508-0 (Version None)
Quarter: 2011Q1

REPORT INFORMATION
  Report Type: 
  Country: None (occurrence: None)
  Receive Date: 20110221
  Receipt Date: 20110209
  Transmission Date: 20110831
  Serious: Yes (Other)
  Sender: FDA-Public Use
  Company Number: JP-AMGEN-JPNCT2011003489

PATIENT
  Age: 70 Year
  Sex: Female
  Weight: 48 kg

DRUGS (11)
  1. IRINOTECAN HYDROCHLORIDE [Concomitant]
     Indication: COLORECTAL CANCER
     Route: 041
     Dates: start: 20100929
  2. ORGADRONE                          /00016002/ [Concomitant]
     Route: 042
  3. DEPAS [Concomitant]
     Route: 048
  4. CALCIUM LEVOFOLINATE [Concomitant]
     Indication: COLORECTAL CANCER
     Route: 041
     Dates: start: 20100929
  5. PROTECADIN [Concomitant]
     Route: 048
  6. FLUOROURACIL [Concomitant]
     Indication: COLORECTAL CANCER
     Route: 040
     Dates: start: 20100929
  7. ALOXI [Concomitant]
     Route: 042
  8. LOXOMARIN [Concomitant]
     Route: 048
  9. GOODMIN [Concomitant]
     Route: 048
  10. JUZENTAIHOTO [Concomitant]
     Route: 048
  11. PANITUMUMAB [Suspect]
     Indication: COLORECTAL CANCER
     Dosage: 6 MG/KG, Q2WK
     Route: 041
     Dates: start: 20100929

REACTIONS (4)
  - DECREASED APPETITE [None]
  - DEHYDRATION [None]
  - DERMATITIS ACNEIFORM [None]
  - STOMATITIS [None]
